FAERS Safety Report 11133149 (Version 1)
Quarter: 2015Q2

REPORT INFORMATION
  Report Type: Spontaneous
  Country: IN (occurrence: IN)
  Receive Date: 20150522
  Receipt Date: 20150522
  Transmission Date: 20150821
  Serious: Yes (Hospitalization)
  Sender: FDA-Public Use
  Company Number: PHHY2015IN058894

PATIENT
  Age: 50 Year
  Sex: Male

DRUGS (1)
  1. TELMISARTAN. [Suspect]
     Active Substance: TELMISARTAN
     Indication: HYPERTENSION
     Route: 065

REACTIONS (4)
  - Burning sensation [Recovered/Resolved]
  - Photosensitivity reaction [Recovered/Resolved]
  - Psoriasis [Recovered/Resolved]
  - Rash pustular [Recovered/Resolved]
